FAERS Safety Report 9444458 (Version 1)
Quarter: 2013Q3

REPORT INFORMATION
  Report Type: Spontaneous
  Country: BR (occurrence: BR)
  Receive Date: 20130807
  Receipt Date: 20130807
  Transmission Date: 20140515
  Serious: Yes (Death)
  Sender: FDA-Public Use
  Company Number: BR-SANOFI-AVENTIS-2013SA076796

PATIENT
  Age: 84 Year
  Sex: Male

DRUGS (3)
  1. LANTUS [Suspect]
     Indication: DIABETES MELLITUS
     Route: 065
     Dates: start: 2004, end: 20130724
  2. CLIKSTAR [Concomitant]
     Indication: DEVICE THERAPY
     Dates: end: 2013
  3. DIGOXIN [Concomitant]
     Indication: CARDIAC DISORDER

REACTIONS (1)
  - Cardiac arrest [Fatal]
